FAERS Safety Report 6882386-1 (Version None)
Quarter: 2010Q3

REPORT INFORMATION
  Report Type: 
  Country: None (occurrence: None)
  Receive Date: 20100729
  Receipt Date: 20100721
  Transmission Date: 20110219
  Serious: Yes (Other)
  Sender: FDA-Public Use
  Company Number: US-BRISTOL-MYERS SQUIBB COMPANY-15204076

PATIENT
  Age: 86 Year
  Sex: Female

DRUGS (5)
  1. COUMADIN [Suspect]
     Route: 065
  2. TUMS [Interacting]
     Indication: FLATULENCE
     Dosage: REGULAR TABS, PEPPERMINT APPROX TAKEN 3 YRS
     Route: 048
  3. TUMS [Interacting]
     Indication: GASTROOESOPHAGEAL REFLUX DISEASE
     Dosage: REGULAR TABS, PEPPERMINT APPROX TAKEN 3 YRS
     Route: 048
  4. TRAMADOL HCL [Concomitant]
     Indication: PAIN
     Dosage: 1-2PER DAY AS NEEDED
  5. MULTAQ [Concomitant]

REACTIONS (2)
  - DRUG INTERACTION [None]
  - INTERNATIONAL NORMALISED RATIO DECREASED [None]
